FAERS Safety Report 11505943 (Version 1)
Quarter: 2015Q3

REPORT INFORMATION
  Report Type: Spontaneous
  Country: FI (occurrence: None)
  Receive Date: 20150911
  Receipt Date: 20150911
  Transmission Date: 20151125
  Serious: No
  Sender: FDA-Public Use
  Company Number: FI-LHC-2015115

PATIENT
  Age: 69 Year
  Sex: Male

DRUGS (1)
  1. CONOXIA (OXYGEN) (INHALATION GAS) (OXYGEN) (VERUM) [Suspect]
     Active Substance: OXYGEN
     Indication: OXYGEN SUPPLEMENTATION
     Dosage: 2 L/MIN, INHALATION
     Route: 055
     Dates: start: 20150821

REACTIONS (3)
  - Malaise [None]
  - Hypoxia [None]
  - Device failure [None]

NARRATIVE: CASE EVENT DATE: 20150821
